FAERS Safety Report 23504398 (Version 1)
Quarter: 2024Q1

REPORT INFORMATION
  Report Type: Spontaneous
  Country: US (occurrence: US)
  Receive Date: 20240209
  Receipt Date: 20240209
  Transmission Date: 20240409
  Serious: No
  Sender: FDA-Public Use
  Company Number: US-IGSA-BIG0021955

PATIENT
  Age: 54 Year
  Sex: Female
  Weight: 92 kg

DRUGS (4)
  1. PROLASTIN-C LIQUID [Suspect]
     Active Substance: .ALPHA.1-PROTEINASE INHIBITOR HUMAN
     Indication: Alpha-1 antitrypsin deficiency
     Dosage: 5520 MILLIGRAM, Q.WK.
     Route: 042
     Dates: start: 20221101
  2. CYANOCOBALAMIN [Concomitant]
     Active Substance: CYANOCOBALAMIN
  3. ATORVASTATIN [Concomitant]
     Active Substance: ATORVASTATIN
  4. NIFEDIPINE [Concomitant]
     Active Substance: NIFEDIPINE

REACTIONS (1)
  - Epistaxis [Not Recovered/Not Resolved]

NARRATIVE: CASE EVENT DATE: 20221101
